FAERS Safety Report 19398219 (Version 1)
Quarter: 2021Q2

REPORT INFORMATION
  Report Type: Spontaneous
  Country: US (occurrence: US)
  Receive Date: 20210609
  Receipt Date: 20210609
  Transmission Date: 20210717
  Serious: No
  Sender: FDA-Public Use
  Company Number: None

PATIENT
  Age: 55 Year
  Sex: Male
  Weight: 97.2 kg

DRUGS (5)
  1. ELDERBERRY [Concomitant]
     Active Substance: HERBALS
  2. ZINC. [Concomitant]
     Active Substance: ZINC
  3. MULTI?VITAMIN [Concomitant]
     Active Substance: .ALPHA.-TOCOPHEROL ACETATE, DL-\ASCORBIC ACID\CYANOCOBALAMIN\FLUORIDE ION\FOLIC ACID\NIACIN\PYRIDOXINE\RIBOFLAVIN\THIAMINE\VITAMIN A\VITAMIN D
  4. VITAMIN D3 [Concomitant]
     Active Substance: CHOLECALCIFEROL
  5. PANTOPRAZOLE NA [Suspect]
     Active Substance: PANTOPRAZOLE SODIUM
     Indication: GASTROOESOPHAGEAL REFLUX DISEASE
     Dosage: ?          QUANTITY:1 TABLET(S);?
     Route: 048
     Dates: start: 20210514, end: 20210520

REACTIONS (7)
  - Rash [None]
  - Mouth swelling [None]
  - Aphthous ulcer [None]
  - Oropharyngeal pain [None]
  - Lip swelling [None]
  - Back pain [None]
  - Streptococcal infection [None]

NARRATIVE: CASE EVENT DATE: 20210515
